FAERS Safety Report 7050119-4 (Version None)
Quarter: 2010Q4

REPORT INFORMATION
  Report Type: 
  Country: None (occurrence: None)
  Receive Date: 20101018
  Receipt Date: 20101013
  Transmission Date: 20110411
  Serious: Yes (Disabling)
  Sender: FDA-Public Use
  Company Number: US-MERCK-0904USA01866

PATIENT
  Age: 24 Year
  Sex: Male

DRUGS (2)
  1. PROPECIA [Suspect]
     Indication: ANDROGENETIC ALOPECIA
     Route: 048
     Dates: start: 20081101, end: 20090101
  2. VITAMINS (UNSPECIFIED) [Concomitant]
     Route: 065

REACTIONS (21)
  - ANGER [None]
  - ANXIETY [None]
  - BODY DYSMORPHIC DISORDER [None]
  - CENTRAL OBESITY [None]
  - DEPRESSED MOOD [None]
  - DISTURBANCE IN ATTENTION [None]
  - ERECTILE DYSFUNCTION [None]
  - FATIGUE [None]
  - GYNAECOMASTIA [None]
  - HYPERHIDROSIS [None]
  - LOSS OF LIBIDO [None]
  - MENTAL IMPAIRMENT [None]
  - MICTURITION DISORDER [None]
  - MOOD ALTERED [None]
  - MYALGIA [None]
  - ORGASMIC SENSATION DECREASED [None]
  - PENILE SIZE REDUCED [None]
  - PENIS DISORDER [None]
  - RESTLESSNESS [None]
  - SEMEN VOLUME DECREASED [None]
  - SOMNOLENCE [None]
